FAERS Safety Report 6298450-4 (Version None)
Quarter: 2009Q3

REPORT INFORMATION
  Report Type: 
  Country: None (occurrence: None)
  Receive Date: 20090724
  Receipt Date: 20090409
  Transmission Date: 20100115
  Serious: Yes (Hospitalization)
  Sender: FDA-Public Use
  Company Number: 2008BI033092

PATIENT
  Age: 30 Year
  Sex: Female

DRUGS (8)
  1. TYSABRI [Suspect]
     Indication: MULTIPLE SCLEROSIS
     Dosage: 300 MG;QM;IV
     Route: 042
     Dates: start: 20080503, end: 20090224
  2. COUMADIN [Concomitant]
  3. LEXAPRO [Concomitant]
  4. PEPCID [Concomitant]
  5. FLOMAX [Concomitant]
  6. VITAMIN D [Concomitant]
  7. BACLOFEN [Concomitant]
  8. COPAXONE [Concomitant]

REACTIONS (2)
  - MULTIPLE SCLEROSIS RELAPSE [None]
  - URINARY TRACT INFECTION [None]
